FAERS Safety Report 6347590-X (Version None)
Quarter: 2009Q3

REPORT INFORMATION
  Report Type: 
  Country: None (occurrence: None)
  Receive Date: 20090910
  Receipt Date: 20090901
  Transmission Date: 20100115
  Serious: Yes (Other)
  Sender: FDA-Public Use
  Company Number: US-JNJFOC-20090901367

PATIENT
  Age: 78 Year
  Sex: Female
  Weight: 79.38 kg

DRUGS (17)
  1. MYLANYA ULTIMATE STRENGTH COOL MINT [Suspect]
     Route: 048
  2. MYLANYA ULTIMATE STRENGTH COOL MINT [Suspect]
     Route: 048
  3. MYLANYA ULTIMATE STRENGTH COOL MINT [Suspect]
     Indication: DYSPEPSIA
     Route: 048
  4. ZETIA [Concomitant]
     Indication: BLOOD CHOLESTEROL INCREASED
  5. AMIODARONE [Concomitant]
     Indication: HEART RATE IRREGULAR
  6. ASPIRIN [Concomitant]
     Indication: PROPHYLAXIS
  7. CALCIUM [Concomitant]
     Indication: MEDICAL DIET
     Dosage: 500-1000 MG DAILY
  8. CELEBREX [Concomitant]
     Indication: BONE PAIN
  9. GLUCOSAMINE [Concomitant]
     Indication: ARTHROPATHY
  10. HYDROCHLOROTHIAZIDE [Concomitant]
     Indication: FLUID RETENTION
  11. POTASSIUM CHLORIDE [Concomitant]
     Indication: BLOOD POTASSIUM DECREASED
  12. CRESTOR [Concomitant]
     Indication: BLOOD CHOLESTEROL INCREASED
  13. E VITAMIN [Concomitant]
     Indication: MEDICAL DIET
  14. COUMADIN [Concomitant]
  15. COUMADIN [Concomitant]
     Indication: ANTICOAGULANT THERAPY
  16. METOPROLOL [Concomitant]
     Indication: HYPERTENSION
  17. DIOVAN [Concomitant]
     Indication: HYPERTENSION

REACTIONS (2)
  - BLOOD GLUCOSE INCREASED [None]
  - TREMOR [None]
